FAERS Safety Report 8762597 (Version 1)
Quarter: 2012Q4

REPORT INFORMATION
  Report Type: 
  Country: US (occurrence: US)
  Receive Date: 20120830
  Receipt Date: 20120830
  Transmission Date: 20130627
  Serious: Yes (Other)
  Sender: FDA-Public Use
  Company Number: US-BAXTER-2012BAX014968

PATIENT
  Sex: Female

DRUGS (3)
  1. GAMMAGARD LIQUID [Suspect]
     Indication: DRUG USE FOR UNKNOWN INDICATION
     Route: 042
     Dates: start: 20120815, end: 20120815
  2. ADVIL [Concomitant]
     Indication: ADVERSE EVENT
     Route: 048
  3. VALIUM [Concomitant]
     Indication: ADVERSE EVENT
     Route: 065

REACTIONS (11)
  - Meningitis [Recovering/Resolving]
  - Movement disorder [Recovering/Resolving]
  - Movement disorder [Unknown]
  - Movement disorder [Unknown]
  - Musculoskeletal stiffness [Recovering/Resolving]
  - Chills [Recovering/Resolving]
  - Pain [Recovering/Resolving]
  - Pyrexia [Recovering/Resolving]
  - Headache [Recovering/Resolving]
  - Pain [Recovering/Resolving]
  - Incorrect drug administration rate [Recovering/Resolving]
